FAERS Safety Report 17036958 (Version 1)
Quarter: 2019Q4

REPORT INFORMATION
  Report Type: Spontaneous
  Country: CN (occurrence: CN)
  Receive Date: 20191115
  Receipt Date: 20191115
  Transmission Date: 20200122
  Serious: Yes (Other)
  Sender: FDA-Public Use
  Company Number: CN-PFIZER INC-2019489384

PATIENT
  Age: 85 Year
  Sex: Male
  Weight: 54 kg

DRUGS (1)
  1. CELEBREX [Suspect]
     Active Substance: CELECOXIB
     Indication: CANCER PAIN
     Dosage: 200 MG, 2X/DAY (ONCE EVERY 12 HOURS)
     Route: 048
     Dates: start: 20191028, end: 20191101

REACTIONS (2)
  - Urinary retention [Recovering/Resolving]
  - Dysuria [Recovering/Resolving]

NARRATIVE: CASE EVENT DATE: 20191030
